FAERS Safety Report 24547212 (Version 6)
Quarter: 2025Q2

REPORT INFORMATION
  Report Type: Spontaneous
  Country: JP (occurrence: JP)
  Receive Date: 20241025
  Receipt Date: 20250403
  Transmission Date: 20250717
  Serious: Yes (Hospitalization, Other)
  Sender: AMGEN
  Company Number: JP-AMGEN-JPNSP2024154308

PATIENT
  Age: 75 Year
  Sex: Male

DRUGS (9)
  1. ERENUMAB [Suspect]
     Active Substance: ERENUMAB
     Indication: Migraine prophylaxis
     Route: 058
     Dates: start: 20220603, end: 20240614
  2. Myonal [Concomitant]
     Route: 065
  3. LIPITOR [Concomitant]
     Active Substance: ATORVASTATIN CALCIUM
     Route: 065
  4. DEPAKENE [Concomitant]
     Active Substance: VALPROIC ACID
     Route: 065
  5. LOMERIZINE HYDROCHLORIDE [Concomitant]
     Active Substance: LOMERIZINE HYDROCHLORIDE
     Route: 065
  6. INDERAL [Concomitant]
     Active Substance: PROPRANOLOL HYDROCHLORIDE
     Route: 065
  7. RELPAX [Concomitant]
     Active Substance: ELETRIPTAN HYDROBROMIDE
     Route: 065
  8. PROPRANOLOL [Concomitant]
     Active Substance: PROPRANOLOL HYDROCHLORIDE
  9. Triptan [Concomitant]

REACTIONS (2)
  - Ileus paralytic [Recovered/Resolved]
  - Arteriosclerosis [Recovering/Resolving]

NARRATIVE: CASE EVENT DATE: 20240710
